FAERS Safety Report 5121810-1 (Version None)
Quarter: 2006Q4

REPORT INFORMATION
  Report Type: 
  Country: None (occurrence: None)
  Receive Date: 20061006
  Receipt Date: 20061002
  Transmission Date: 20070319
  Serious: Yes (Life-Threatening, Hospitalization, Other)
  Sender: FDA-Public Use
  Company Number: LT-AVENTIS-200615002EU

PATIENT
  Age: 61 Year
  Sex: Male

DRUGS (33)
  1. ENOXAPARIN SODIUM [Suspect]
     Indication: THROMBOSIS PROPHYLAXIS
     Route: 058
  2. ENOXAPARIN SODIUM [Suspect]
     Route: 058
     Dates: end: 20060918
  3. DIAZEPAM [Concomitant]
     Indication: PREMEDICATION
     Dates: start: 20060828, end: 20060828
  4. DIAZEPAM [Concomitant]
     Dates: start: 20060829, end: 20060829
  5. DIAZEPAM [Concomitant]
     Dates: start: 20060830, end: 20060831
  6. DIAZEPAM [Concomitant]
     Indication: SEDATION
     Dates: start: 20060828, end: 20060828
  7. DIAZEPAM [Concomitant]
     Dates: start: 20060829, end: 20060829
  8. DIAZEPAM [Concomitant]
     Dates: start: 20060830, end: 20060831
  9. BUPIVACAINE [Concomitant]
     Indication: EPIDURAL ANAESTHESIA
     Dates: start: 20060829, end: 20060829
  10. MIDAZOLAM HYDROCHLORIDE [Concomitant]
     Indication: PREMEDICATION
     Dates: start: 20060829, end: 20060829
  11. FENTANYL [Concomitant]
     Indication: ANALGESIC EFFECT
     Dates: start: 20060829, end: 20060829
  12. THIOPENTAL SODIUM [Concomitant]
     Indication: ANAESTHESIA
     Dates: start: 20060829, end: 20060829
  13. CEFAZOLIN [Concomitant]
     Indication: ANTIBIOTIC PROPHYLAXIS
     Dates: start: 20060829, end: 20060829
  14. RANITIDINE HYDROCHLORIDE [Concomitant]
     Indication: GASTRIC ULCER
     Dates: start: 20060828, end: 20060903
  15. RANITIDINE HYDROCHLORIDE [Concomitant]
     Indication: PROPHYLAXIS
     Dates: start: 20060828, end: 20060903
  16. KETONAL                            /00321701/ [Concomitant]
     Indication: ANALGESIC EFFECT
     Dates: start: 20060829, end: 20060829
  17. KETONAL                            /00321701/ [Concomitant]
     Dates: start: 20060830, end: 20060905
  18. KETONAL                            /00321701/ [Concomitant]
     Dates: start: 20060907, end: 20060907
  19. METOCLOPRAMIDE [Concomitant]
     Indication: NAUSEA
     Dates: start: 20060829, end: 20060829
  20. ANALGIN [Concomitant]
     Indication: ANALGESIC EFFECT
     Dates: start: 20060829, end: 20060829
  21. ANALGIN [Concomitant]
     Dates: start: 20060831, end: 20060901
  22. PETHIDIN [Concomitant]
     Indication: ANALGESIC EFFECT
     Dates: start: 20060829, end: 20060830
  23. DICLOFENAC [Concomitant]
     Indication: ANALGESIC EFFECT
     Dates: start: 20060830, end: 20060831
  24. DICLOFENAC [Concomitant]
     Dates: start: 20060906, end: 20060906
  25. TRAMADOL HCL [Concomitant]
     Indication: ANALGESIC EFFECT
     Dates: start: 20060830, end: 20060830
  26. DICLAC                             /00372302/ [Concomitant]
     Indication: ANALGESIC EFFECT
     Dates: start: 20060830, end: 20060831
  27. DICLAC                             /00372302/ [Concomitant]
     Dates: start: 20060906, end: 20060906
  28. METOPROLOL TARTRATE [Concomitant]
     Indication: HYPERTENSION
     Dates: start: 20060830, end: 20060906
  29. METOPROLOL TARTRATE [Concomitant]
     Dates: start: 20060907
  30. ACCUZIDE [Concomitant]
     Indication: HYPERTENSION
     Dates: start: 20060902, end: 20060906
  31. ACCUZIDE [Concomitant]
     Dates: start: 20060907
  32. ACCUPRO [Concomitant]
     Indication: HYPERTENSION
     Dates: start: 20060902, end: 20060905
  33. ACCUPRO [Concomitant]
     Dates: start: 20060906

REACTIONS (6)
  - ANGINA PECTORIS [None]
  - CHOLELITHIASIS [None]
  - PANCREATITIS ACUTE [None]
  - PLEURAL EFFUSION [None]
  - RESPIRATORY FAILURE [None]
  - RESPIRATORY RATE INCREASED [None]
